FAERS Safety Report 7948829-7 (Version None)
Quarter: 2011Q4

REPORT INFORMATION
  Report Type: 
  Country: None (occurrence: None)
  Receive Date: 20111128
  Receipt Date: 20111128
  Transmission Date: 20120403
  Serious: Yes (Life-Threatening)
  Sender: FDA-Public Use
  Company Number: None

PATIENT
  Sex: Female

DRUGS (1)
  1. CLIMARA [Suspect]

REACTIONS (9)
  - BRONCHITIS [None]
  - MUSCLE SPASMS [None]
  - PRURITUS [None]
  - OROPHARYNGEAL PAIN [None]
  - DRUG HYPERSENSITIVITY [None]
  - THROAT TIGHTNESS [None]
  - MALAISE [None]
  - SWOLLEN TONGUE [None]
  - SKIN DISORDER [None]
